FAERS Safety Report 16104105 (Version 1)
Quarter: 2019Q1

REPORT INFORMATION
  Report Type: Spontaneous
  Country: DE (occurrence: DE)
  Receive Date: 20190322
  Receipt Date: 20190322
  Transmission Date: 20190418
  Serious: Yes (Life-Threatening, Hospitalization, Other)
  Sender: FDA-Public Use
  Company Number: DE-ACCORD-114113

PATIENT
  Age: 74 Year
  Sex: Female
  Weight: 72 kg

DRUGS (7)
  1. BISOPROLOL [Concomitant]
     Active Substance: BISOPROLOL
     Indication: HYPERTENSION
     Dosage: DAILY DOSE: 5 MG MILLGRAM(S) EVERY DAYS
     Route: 048
  2. OXAZEPAM. [Concomitant]
     Active Substance: OXAZEPAM
     Dosage: DAILY DOSE: 1 DF DOSAGE FORM EVERY AS NECESSARY
  3. AMITRIPTYLINE DURA [Concomitant]
     Dosage: DAILY DOSE: 1 DF DOSAGE FORM EVERY DAYS
  4. NORSPAN [Concomitant]
     Active Substance: BUPRENORPHINE
     Route: 062
  5. PANTOPRAZOLE [Concomitant]
     Active Substance: PANTOPRAZOLE
     Dosage: DAILY DOSE: 20 MG MILLGRAM(S) EVERY DAYS
     Route: 048
  6. TORASEMIDE [Concomitant]
     Active Substance: TORSEMIDE
     Dosage: STRENGTH: 10 MG
  7. OLMESARTAN/OLMESARTAN MEDOXOMIL [Suspect]
     Active Substance: OLMESARTAN MEDOXOMIL
     Indication: HYPERTENSION
     Dosage: STRENGTH: 40/25, DAILY DOSE: 1 DF DOSAGE FORM EVERY DAYS
     Route: 048
     Dates: start: 20170720, end: 20180523

REACTIONS (8)
  - Diarrhoea [Recovering/Resolving]
  - Cachexia [Recovering/Resolving]
  - Dehydration [Recovering/Resolving]
  - Enteritis [Recovering/Resolving]
  - Nausea [Recovering/Resolving]
  - Malabsorption [Recovering/Resolving]
  - Hypotension [Recovering/Resolving]
  - Weight decreased [Unknown]

NARRATIVE: CASE EVENT DATE: 201803
